FAERS Safety Report 5213004-6 (Version None)
Quarter: 2007Q1

REPORT INFORMATION
  Report Type: 
  Country: None (occurrence: None)
  Receive Date: 20070117
  Receipt Date: 20070117
  Transmission Date: 20070707
  Serious: Yes (Hospitalization)
  Sender: FDA-Public Use
  Company Number: None

PATIENT
  Age: 59 Year
  Sex: Male

DRUGS (13)
  1. PIPERACILLIN AND TAZOBACTAM [Suspect]
     Indication: SEPSIS
     Dosage: 2.25 GM Q 6 H IV DRIP
     Route: 041
     Dates: start: 20061025, end: 20061101
  2. HEPARIN [Suspect]
     Indication: THROMBOSIS PROPHYLAXIS
     Dosage: 5000 UNITS Q 12 H SQ
     Route: 058
     Dates: start: 20061025, end: 20061030
  3. ACETAMINOPHEN TAB [Concomitant]
  4. ALBUTEROL [Concomitant]
  5. CIPROFLOXACIN IN DEXTROSE 5% [Concomitant]
  6. FLUCONAZOLE [Concomitant]
  7. HUMULIN R [Concomitant]
  8. IPRATROPIUM BR [Concomitant]
  9. LORAZEPAM [Concomitant]
  10. MEROPENEM [Concomitant]
  11. SODIUM CHLORIDE 0.9% [Concomitant]
  12. MORPHINE SULFATE [Concomitant]
  13. NOREPINEPHRINE BITARTRATE [Concomitant]

REACTIONS (1)
  - THROMBOCYTOPENIA [None]
